FAERS Safety Report 5295947-0 (Version None)
Quarter: 2007Q2

REPORT INFORMATION
  Report Type: 
  Country: None (occurrence: None)
  Receive Date: 20070413
  Receipt Date: 20070402
  Transmission Date: 20071010
  Serious: Yes (Other)
  Sender: FDA-Public Use
  Company Number: GBWYE308202APR07

PATIENT
  Sex: Male

DRUGS (2)
  1. ENBREL [Suspect]
     Indication: DRUG USE FOR UNKNOWN INDICATION
     Dosage: 0.4MG/KG, FREQUENCY UNSPECIFIED
     Route: 042
     Dates: start: 20070301
  2. PREDNISOLONE [Concomitant]
     Dosage: 1MG/KG, FREQUENCY UNSPECIFIED

REACTIONS (1)
  - HYPERTENSION [None]
